FAERS Safety Report 24334390 (Version 1)
Quarter: 2024Q3

REPORT INFORMATION
  Report Type: Spontaneous
  Country: US (occurrence: None)
  Receive Date: 20240918
  Receipt Date: 20240918
  Transmission Date: 20241016
  Serious: Yes (Hospitalization)
  Sender: Public
  Company Number: None

PATIENT
  Age: 30 Year
  Sex: Female

DRUGS (11)
  1. TACROLIMUS [Suspect]
     Active Substance: TACROLIMUS
     Indication: Liver transplant
     Route: 048
     Dates: start: 20240606
  2. ASPIRIN LOW [Concomitant]
  3. FAMOTIDINE [Concomitant]
     Active Substance: FAMOTIDINE
  4. FUROSEMIDE [Concomitant]
     Active Substance: FUROSEMIDE
  5. LACTULOSE [Concomitant]
     Active Substance: LACTULOSE
  6. LEVOFLOXACIN [Concomitant]
     Active Substance: LEVOFLOXACIN
  7. LEVOFLOXACIN [Concomitant]
     Active Substance: LEVOFLOXACIN
  8. LOKELMA [Concomitant]
     Active Substance: SODIUM ZIRCONIUM CYCLOSILICATE
  9. METHOCARBAMOL [Concomitant]
     Active Substance: METHOCARBAMOL
  10. MIDODRINE [Concomitant]
     Active Substance: MIDODRINE
  11. MIRENA [Concomitant]
     Active Substance: LEVONORGESTREL

REACTIONS (1)
  - Hospitalisation [None]

NARRATIVE: CASE EVENT DATE: 20240917
